FAERS Safety Report 13032969 (Version 1)
Quarter: 2016Q4

REPORT INFORMATION
  Report Type: Spontaneous
  Country: US (occurrence: US)
  Receive Date: 20161215
  Receipt Date: 20161215
  Transmission Date: 20170207
  Serious: No
  Sender: FDA-Public Use
  Company Number: US-BANPHARM-20164640

PATIENT
  Age: 73 Year
  Sex: Female
  Weight: 62.6 kg

DRUGS (2)
  1. ERGOCALCIFEROL CAPSULES 1.25 MG [Suspect]
     Active Substance: ERGOCALCIFEROL
     Route: 048
     Dates: start: 201601
  2. VITAMIN B12 [Concomitant]
     Active Substance: CYANOCOBALAMIN

REACTIONS (2)
  - Dyspepsia [Unknown]
  - Nausea [Unknown]
